FAERS Safety Report 25307508 (Version 3)
Quarter: 2025Q3

REPORT INFORMATION
  Report Type: Report from Study
  Country: US (occurrence: US)
  Receive Date: 20250513
  Receipt Date: 20250917
  Transmission Date: 20251021
  Serious: No
  Sender: TRAVERE THERAPEUTICS
  Company Number: US-TRAVERE-2025TVT00601

PATIENT
  Age: 42 Year
  Sex: Female

DRUGS (12)
  1. FILSPARI [Suspect]
     Active Substance: SPARSENTAN
     Indication: IgA nephropathy
     Route: 048
  2. FILSPARI [Suspect]
     Active Substance: SPARSENTAN
     Route: 048
  3. FILSPARI [Suspect]
     Active Substance: SPARSENTAN
     Route: 048
  4. FILSPARI [Suspect]
     Active Substance: SPARSENTAN
     Route: 048
     Dates: start: 20250403
  5. FILSPARI [Suspect]
     Active Substance: SPARSENTAN
     Route: 048
  6. ABRAXANE [Concomitant]
     Active Substance: PACLITAXEL
  7. NOLVADEX [Concomitant]
     Active Substance: TAMOXIFEN CITRATE
  8. FARXIGA [Concomitant]
     Active Substance: DAPAGLIFLOZIN PROPANEDIOL
  9. EFFEXOR [Concomitant]
     Active Substance: VENLAFAXINE HYDROCHLORIDE
  10. VITAMIN D [Concomitant]
     Active Substance: VITAMIN D NOS
  11. DUAC [Concomitant]
     Active Substance: BENZOYL PEROXIDE\CLINDAMYCIN PHOSPHATE
  12. Flonase Propionate [Concomitant]

REACTIONS (6)
  - Malaise [Unknown]
  - Fatigue [Recovered/Resolved]
  - Depression [Unknown]
  - Proteinuria [Unknown]
  - Blood pressure systolic decreased [Unknown]
  - Contraindicated product administered [Unknown]
